FAERS Safety Report 5255415-9 (Version None)
Quarter: 2007Q1

REPORT INFORMATION
  Report Type: 
  Country: None (occurrence: None)
  Receive Date: 20070305
  Receipt Date: 20070221
  Transmission Date: 20070707
  Serious: Yes (Other)
  Sender: FDA-Public Use
  Company Number: US-MERCK-0701USA03890

PATIENT
  Age: 47 Year
  Sex: Female
  Weight: 65 kg

DRUGS (15)
  1. FOSAMAX [Suspect]
     Indication: OSTEOPOROSIS
     Route: 048
     Dates: start: 20040621, end: 20060323
  2. XANAX [Concomitant]
     Route: 065
  3. VICODIN ES [Concomitant]
     Route: 065
     Dates: start: 20041006
  4. LASIX [Concomitant]
     Route: 065
     Dates: start: 19950614
  5. POTASSIUM (UNSPECIFIED) [Concomitant]
     Route: 065
     Dates: start: 19950614
  6. SINGULAIR [Concomitant]
     Route: 065
     Dates: start: 20030101
  7. ALLOPURINOL [Concomitant]
     Route: 065
     Dates: start: 20010101
  8. PROGESTERONE [Concomitant]
     Route: 065
     Dates: end: 20060301
  9. VOLMAX [Concomitant]
     Route: 065
     Dates: start: 20020101
  10. DIFFERIN [Concomitant]
     Route: 065
     Dates: end: 20060301
  11. CORGARD [Concomitant]
     Route: 065
  12. COMBIVENT [Concomitant]
     Route: 065
     Dates: start: 20010101
  13. LEVOXYL [Concomitant]
     Route: 065
     Dates: start: 20030101
  14. MAXALT [Concomitant]
     Route: 065
  15. [THERAPY UNSPECIFIED] [Concomitant]
     Route: 065
     Dates: start: 20030328

REACTIONS (9)
  - ANXIETY [None]
  - ASTHMA [None]
  - DEPRESSION [None]
  - INSOMNIA [None]
  - OSTEOMYELITIS [None]
  - OSTEONECROSIS [None]
  - SINUSITIS [None]
  - TOOTH DISORDER [None]
  - WISDOM TEETH REMOVAL [None]
